FAERS Safety Report 8908940 (Version 1)
Quarter: 2012Q4

REPORT INFORMATION
  Report Type: 
  Country: US (occurrence: US)
  Receive Date: 20121114
  Receipt Date: 20121114
  Transmission Date: 20130627
  Serious: No
  Sender: FDA-Public Use
  Company Number: US-MYLANLABS-2012S1008151

PATIENT
  Age: 67 Year
  Sex: Male

DRUGS (4)
  1. MAXZIDE [Suspect]
     Indication: HYPERTENSION
     Route: 048
     Dates: start: 20120301
  2. CRESTOR [Concomitant]
     Indication: BLOOD CHOLESTEROL INCREASED
     Route: 048
  3. ASA [Concomitant]
     Route: 048
  4. VITAMIN B [Concomitant]
     Route: 048

REACTIONS (1)
  - Erectile dysfunction [Not Recovered/Not Resolved]
